FAERS Safety Report 4534980-0 (Version None)
Quarter: 2004Q4

REPORT INFORMATION
  Report Type: 
  Country: None (occurrence: None)
  Receive Date: 20041222
  Receipt Date: 20041014
  Transmission Date: 20050328
  Serious: No
  Sender: FDA-Public Use
  Company Number: US-BRISTOL-MYERS SQUIBB COMPANY-12732814

PATIENT
  Age: 65 Year
  Sex: Female
  Weight: 101 kg

DRUGS (7)
  1. PRAVACHOL [Suspect]
     Indication: BLOOD CHOLESTEROL INCREASED
     Route: 048
  2. QUININE [Concomitant]
  3. MAXZIDE [Concomitant]
  4. ALLOPURINOL [Concomitant]
  5. MULTIVITAMIN [Concomitant]
  6. LOTENSIN [Concomitant]
  7. ASPIRIN [Concomitant]

REACTIONS (1)
  - CONSTIPATION [None]
